FAERS Safety Report 7407236-6 (Version None)
Quarter: 2011Q2

REPORT INFORMATION
  Report Type: 
  Country: None (occurrence: None)
  Receive Date: 20110411
  Receipt Date: 20110329
  Transmission Date: 20111010
  Serious: Yes (Other)
  Sender: FDA-Public Use
  Company Number: PHHY2011NL26317

PATIENT
  Sex: Male

DRUGS (2)
  1. ZOMETA [Suspect]
     Indication: PROSTATE CANCER METASTATIC
     Dosage: 04 MG (ADMINISTERED WITH NACL 0.9% 100ML BAG, RYTHMIC COMPLETE SET 160ML)
  2. ZOMETA [Suspect]
     Dosage: 04 MG (ADMINISTERED WITH NACL 0.9% 100ML BAG, RYTHMIC COMPLETE SET 160ML)
     Dates: start: 20110104

REACTIONS (1)
  - AORTIC RUPTURE [None]
